FAERS Safety Report 8967842 (Version 1)
Quarter: 2012Q4

REPORT INFORMATION
  Report Type: 
  Country: US (occurrence: US)
  Receive Date: 20121217
  Receipt Date: 20121217
  Transmission Date: 20130627
  Serious: Yes (Congenital Anomaly)
  Sender: FDA-Public Use
  Company Number: US-009507513-1209USA003456

PATIENT

DRUGS (3)
  1. ISENTRESS [Suspect]
     Dosage: 800 mg / day
     Route: 064
  2. ZIDOVUDINE [Suspect]
     Route: 064
  3. PREZISTA [Suspect]
     Dosage: 1200 mg, qd
     Route: 064

REACTIONS (3)
  - Congenital anomaly [Unknown]
  - Maternal drugs affecting foetus [Unknown]
  - Foetal exposure during pregnancy [Unknown]
